FAERS Safety Report 18700377 (Version 1)
Quarter: 2021Q1

REPORT INFORMATION
  Report Type: Spontaneous
  Country: US (occurrence: US)
  Receive Date: 20210104
  Receipt Date: 20210104
  Transmission Date: 20210419
  Serious: Yes (Hospitalization)
  Sender: FDA-Public Use
  Company Number: None

PATIENT
  Age: 78 Year
  Sex: Male
  Weight: 102.1 kg

DRUGS (7)
  1. CELECOXIB 200 MG CAPSULE [Concomitant]
     Active Substance: CELECOXIB
     Dates: start: 20201027, end: 20201225
  2. LOSARTAN 100 MG TAB [Concomitant]
     Dates: start: 20201006, end: 20201225
  3. LANTUS SOLOSTAR 100 UNITS/ML PEN INJECTOR [Concomitant]
     Dates: start: 20200204, end: 20201225
  4. HUMALOG KWIK PEN 100 UNITS/ML PEN INJECTOR [Concomitant]
     Dates: start: 20200918, end: 20201225
  5. ESCITALOPRAM 20 MG TAB [Concomitant]
     Dates: start: 20201112, end: 20201225
  6. BAMLANIVIMAB. [Suspect]
     Active Substance: BAMLANIVIMAB
     Indication: COVID-19
     Dosage: ?          OTHER FREQUENCY:ONCE;?
     Route: 042
     Dates: start: 20201225, end: 20201225
  7. TOLTERODINE 24 HR 4 MG CAPSULE [Concomitant]
     Dates: start: 20201210, end: 20201225

REACTIONS (3)
  - Dizziness [None]
  - Gait disturbance [None]
  - Confusional state [None]

NARRATIVE: CASE EVENT DATE: 20201226
